FAERS Safety Report 6050602-4 (Version None)
Quarter: 2009Q1

REPORT INFORMATION
  Report Type: 
  Country: None (occurrence: None)
  Receive Date: 20090126
  Receipt Date: 20081226
  Transmission Date: 20090719
  Serious: No
  Sender: FDA-Public Use
  Company Number: US-BAYER-200838515NA

PATIENT
  Age: 19 Year
  Sex: Female

DRUGS (3)
  1. YASMIN [Suspect]
     Indication: DRUG USE FOR UNKNOWN INDICATION
     Route: 048
     Dates: start: 20081105
  2. YASMIN [Suspect]
     Route: 048
     Dates: end: 20060101
  3. LAMICTAL [Concomitant]
     Indication: DEPRESSION

REACTIONS (4)
  - DEPRESSION [None]
  - NO ADVERSE EVENT [None]
  - ORTHOSTATIC INTOLERANCE [None]
  - POLYURIA [None]
